FAERS Safety Report 21817480 (Version 1)
Quarter: 2023Q1

REPORT INFORMATION
  Report Type: Report from Study
  Country: US (occurrence: US)
  Receive Date: 20230104
  Receipt Date: 20230104
  Transmission Date: 20230418
  Serious: No
  Sender: FDA-Public Use
  Company Number: US-ABBVIE-4246761

PATIENT
  Age: 37 Year
  Sex: Female

DRUGS (1)
  1. HUMIRA [Suspect]
     Active Substance: ADALIMUMAB
     Indication: Psoriatic arthropathy
     Dosage: CF, FORM STRENGTH: 40 MG
     Route: 058
     Dates: start: 20221206

REACTIONS (7)
  - Photophobia [Unknown]
  - Injection site haemorrhage [Recovering/Resolving]
  - Skin plaque [Recovering/Resolving]
  - Eye pain [Unknown]
  - Dry skin [Unknown]
  - Psoriatic arthropathy [Unknown]
  - Papule [Unknown]

NARRATIVE: CASE EVENT DATE: 20221220
